FAERS Safety Report 15286448 (Version 5)
Quarter: 2018Q3

REPORT INFORMATION
  Report Type: Report from Study
  Country: US (occurrence: US)
  Receive Date: 20180816
  Receipt Date: 20180927
  Transmission Date: 20181010
  Serious: Yes (Hospitalization, Other)
  Sender: FDA-Public Use
  Company Number: US-ACTELION-A-NJ2018-177024

PATIENT
  Age: 54 Year
  Sex: Female
  Weight: 81.63 kg

DRUGS (4)
  1. VELETRI [Suspect]
     Active Substance: EPOPROSTENOL
     Dosage: 4 NG/KG, PER MIN
     Route: 042
  2. OPSUMIT [Suspect]
     Active Substance: MACITENTAN
     Indication: PULMONARY ARTERIAL HYPERTENSION
     Dosage: UNK
     Route: 048
     Dates: start: 20180515, end: 20180716
  3. SILDENAFIL. [Concomitant]
     Active Substance: SILDENAFIL
     Route: 048
  4. VELETRI [Suspect]
     Active Substance: EPOPROSTENOL
     Indication: PULMONARY ARTERIAL HYPERTENSION
     Dosage: 5 NG/KG, PER MIN
     Route: 042

REACTIONS (22)
  - Nausea [Not Recovered/Not Resolved]
  - Diarrhoea [Unknown]
  - Renal failure [Unknown]
  - Catheter site discharge [Unknown]
  - Joint swelling [Unknown]
  - Device related infection [Unknown]
  - Anaemia [Not Recovered/Not Resolved]
  - Thrombocytopenia [Not Recovered/Not Resolved]
  - Cough [Unknown]
  - Central venous catheterisation [Unknown]
  - Central venous catheter removal [Unknown]
  - Catheter site pain [Unknown]
  - Oedema peripheral [Unknown]
  - Dyspnoea exertional [Unknown]
  - Therapy non-responder [Unknown]
  - Sepsis [Unknown]
  - Pulmonary hypertension [Unknown]
  - Acute kidney injury [Not Recovered/Not Resolved]
  - Blood creatinine increased [Not Recovered/Not Resolved]
  - Hypotension [Unknown]
  - Blood potassium decreased [Unknown]
  - Blood magnesium decreased [Unknown]

NARRATIVE: CASE EVENT DATE: 20180801
